FAERS Safety Report 5782841-1 (Version None)
Quarter: 2008Q2

REPORT INFORMATION
  Report Type: 
  Country: None (occurrence: None)
  Receive Date: 20080619
  Receipt Date: 20080605
  Transmission Date: 20081010
  Serious: Yes (Death, Other)
  Sender: FDA-Public Use
  Company Number: 029083

PATIENT
  Age: 50 Year
  Sex: 0

DRUGS (3)
  1. AMITRIPTYLINE HCL [Suspect]
     Dosage: ORAL
     Route: 048
  2. DOXEPIN HCL [Suspect]
     Dosage: ORAL
     Route: 048
  3. ACETAMINOPHEN W/HYDROCODONE BITARTRATE(HYDROCODONE BITARTRATE, ACETAMI [Suspect]
     Dosage: ORAL
     Route: 048

REACTIONS (2)
  - COMPLETED SUICIDE [None]
  - DRUG TOXICITY [None]
